FAERS Safety Report 9449269 (Version 4)
Quarter: 2013Q4

REPORT INFORMATION
  Report Type: Report from Study
  Country: DE (occurrence: DE)
  Receive Date: 20130808
  Receipt Date: 20131015
  Transmission Date: 20140711
  Serious: Yes (Life-Threatening, Hospitalization)
  Sender: FDA-Public Use
  Company Number: DE-GLAXOSMITHKLINE-B0914110A

PATIENT
  Age: 66 Year
  Sex: Female
  Weight: 66 kg

DRUGS (14)
  1. PAZOPANIB [Suspect]
     Indication: SARCOMA
     Route: 048
     Dates: start: 20121212
  2. GEMCITABINE [Suspect]
     Indication: SARCOMA
     Route: 042
     Dates: start: 20121212
  3. L-THYROXINE [Concomitant]
  4. AMLODIPIN [Concomitant]
  5. ZYPREXA [Concomitant]
  6. ARIXTRA [Concomitant]
  7. VAGIMID [Concomitant]
  8. METOHEXAL [Concomitant]
  9. MELPERON [Concomitant]
  10. MOXONIDIN [Concomitant]
  11. TREVILOR [Concomitant]
  12. HCT HEXAL [Concomitant]
  13. ALLOPURINOL [Concomitant]
  14. FRAXIPARINE [Concomitant]

REACTIONS (4)
  - Renal failure acute [Recovered/Resolved]
  - Hyperkalaemia [Recovered/Resolved]
  - Metabolic disorder [Recovered/Resolved]
  - Bradycardia [Recovered/Resolved]
